FAERS Safety Report 13170154 (Version 4)
Quarter: 2017Q3

REPORT INFORMATION
  Report Type: Report from Study
  Country: US (occurrence: US)
  Receive Date: 20170201
  Receipt Date: 20170816
  Transmission Date: 20171127
  Serious: Yes (Other)
  Sender: FDA-Public Use
  Company Number: US-AMGEN-USASP2017014039

PATIENT
  Age: 65 Year
  Sex: Female
  Weight: 77.55 kg

DRUGS (6)
  1. ENBREL [Suspect]
     Active Substance: ETANERCEPT
     Indication: PSORIASIS
     Dosage: 50 MG, QWK
     Route: 058
  2. MYRBETRIQ [Concomitant]
     Active Substance: MIRABEGRON
     Dosage: 50 MG, QD
  3. IBUPROFEN. [Concomitant]
     Active Substance: IBUPROFEN
     Dosage: 800 MG, QD
  4. ENBREL [Suspect]
     Active Substance: ETANERCEPT
     Indication: PSORIATIC ARTHROPATHY
     Dosage: 50 MG, QWK
     Route: 058
     Dates: start: 2017
  5. TYLENOL [Concomitant]
     Active Substance: ACETAMINOPHEN
     Dosage: (1000-50 MG), QHS
  6. TRIAMCINOLONE ACETONIDE. [Concomitant]
     Active Substance: TRIAMCINOLONE ACETONIDE
     Dosage: UNK UNK, BID

REACTIONS (5)
  - Hodgkin^s disease [Unknown]
  - Leukocytosis [Unknown]
  - Drug dose omission [Unknown]
  - Nerve compression [Unknown]
  - Benign salivary gland neoplasm [Unknown]

NARRATIVE: CASE EVENT DATE: 2017
